FAERS Safety Report 7221379-1 (Version None)
Quarter: 2011Q1

REPORT INFORMATION
  Report Type: 
  Country: None (occurrence: None)
  Receive Date: 20110112
  Receipt Date: 20110106
  Transmission Date: 20110831
  Serious: Yes (Hospitalization)
  Sender: FDA-Public Use
  Company Number: FR-PFIZER INC-2010062621

PATIENT
  Age: 34 Year
  Sex: Male

DRUGS (8)
  1. SOLU-MEDROL [Suspect]
     Indication: MENINGITIS PNEUMOCOCCAL
     Dosage: 10 MG, 4X/DAY
     Dates: start: 20100416, end: 20100418
  2. TEGELINE [Suspect]
     Indication: IMMUNOSUPPRESSION
     Dosage: 20 G, 1X/DAY
     Route: 042
     Dates: start: 20100414, end: 20100415
  3. PARACETAMOL [Suspect]
     Indication: PYREXIA
     Dosage: 1 G, 4X/DAY
     Route: 042
     Dates: start: 20100413, end: 20100425
  4. AMOXICILLIN SODIUM [Suspect]
     Indication: PNEUMOCOCCAL BACTERAEMIA
     Dosage: UNK
     Route: 042
     Dates: start: 20100413, end: 20100414
  5. GENTAMICIN [Suspect]
     Indication: MENINGITIS PNEUMOCOCCAL
     Dosage: 360 MG, 1X/DAY
     Route: 042
     Dates: start: 20100414, end: 20100415
  6. ROCEPHIN [Suspect]
     Indication: MENINGITIS PNEUMOCOCCAL
     Dosage: 4 G, 3X/DAY
     Route: 042
     Dates: start: 20100414, end: 20100423
  7. VANCOMYCIN HCL [Suspect]
     Indication: MENINGITIS PNEUMOCOCCAL
     Dosage: 5 G, 1X/DAY
     Route: 042
     Dates: start: 20100415, end: 20100424
  8. AERIUS [Concomitant]
     Indication: ERYTHEMA
     Dosage: 1 DF, 1X/DAY
     Route: 048
     Dates: start: 20100422, end: 20100426

REACTIONS (3)
  - PYREXIA [None]
  - RASH MACULO-PAPULAR [None]
  - EOSINOPHILIA [None]
